FAERS Safety Report 14678691 (Version 2)
Quarter: 2018Q2

REPORT INFORMATION
  Report Type: Spontaneous
  Country: US (occurrence: US)
  Receive Date: 20180326
  Receipt Date: 20180503
  Transmission Date: 20180711
  Serious: No
  Sender: FDA-Public Use
  Company Number: US-JNJFOC-20180316012

PATIENT
  Age: 88 Year
  Sex: Male
  Weight: 49.9 kg

DRUGS (2)
  1. ZYTIGA [Suspect]
     Active Substance: ABIRATERONE ACETATE
     Indication: PROSTATE CANCER METASTATIC
     Route: 048
     Dates: start: 20180312
  2. CASODEX [Concomitant]
     Active Substance: BICALUTAMIDE
     Route: 065

REACTIONS (3)
  - Malaise [Not Recovered/Not Resolved]
  - Product size issue [Unknown]
  - Choking sensation [Unknown]

NARRATIVE: CASE EVENT DATE: 20180312
